FAERS Safety Report 4785554-8 (Version None)
Quarter: 2005Q4

REPORT INFORMATION
  Report Type: 
  Country: None (occurrence: None)
  Receive Date: 20051003
  Receipt Date: 20050929
  Transmission Date: 20060501
  Serious: Yes (Other)
  Sender: FDA-Public Use
  Company Number: US-GLAXOSMITHKLINE-A0576437A

PATIENT
  Sex: Male

DRUGS (1)
  1. PAXIL [Suspect]
     Indication: DEPRESSION

REACTIONS (4)
  - ABNORMAL BEHAVIOUR [None]
  - APRAXIA [None]
  - DRUG EXPOSURE DURING PREGNANCY [None]
  - SPEECH DISORDER [None]
